FAERS Safety Report 20283179 (Version 2)
Quarter: 2022Q1

REPORT INFORMATION
  Report Type: Spontaneous
  Country: US (occurrence: US)
  Receive Date: 20220103
  Receipt Date: 20220301
  Transmission Date: 20220423
  Serious: No
  Sender: FDA-Public Use
  Company Number: US-SA-SAC20211230000196

PATIENT
  Age: 36 Year
  Sex: Female

DRUGS (1)
  1. AUBAGIO [Suspect]
     Active Substance: TERIFLUNOMIDE
     Indication: Multiple sclerosis
     Dosage: 14 MG, QD
     Route: 048
     Dates: start: 20210610

REACTIONS (12)
  - Depression [Unknown]
  - Musculoskeletal stiffness [Unknown]
  - Muscle spasticity [Unknown]
  - Pain [Unknown]
  - Sexual dysfunction [Unknown]
  - Fatigue [Unknown]
  - Bladder discomfort [Unknown]
  - Abdominal discomfort [Unknown]
  - Cognitive disorder [Unknown]
  - Paraesthesia [Unknown]
  - Product dose omission issue [Unknown]
  - Paraesthesia [Unknown]

NARRATIVE: CASE EVENT DATE: 20210101
